FAERS Safety Report 9209245 (Version 2)
Quarter: 2013Q2

REPORT INFORMATION
  Report Type: Spontaneous
  Country: JP (occurrence: JP)
  Receive Date: 20130404
  Receipt Date: 20130419
  Transmission Date: 20140414
  Serious: Yes (Death)
  Sender: FDA-Public Use
  Company Number: JP-JNJFOC-20130317303

PATIENT
  Age: 75 Year
  Sex: Female
  Weight: 45 kg

DRUGS (5)
  1. XARELTO [Suspect]
     Indication: THROMBOSIS PROPHYLAXIS
     Route: 048
     Dates: start: 20120827, end: 20120912
  2. ACETYLSALICYLIC ACID [Concomitant]
     Route: 065
  3. LASIX [Concomitant]
     Route: 048
  4. DIOVAN [Concomitant]
     Route: 048
  5. EXCEGRAN [Concomitant]
     Route: 048

REACTIONS (1)
  - Embolic stroke [Fatal]
